FAERS Safety Report 7960962-2 (Version None)
Quarter: 2011Q4

REPORT INFORMATION
  Report Type: 
  Country: None (occurrence: None)
  Receive Date: 20111202
  Receipt Date: 20111123
  Transmission Date: 20120403
  Serious: Yes (Other)
  Sender: FDA-Public Use
  Company Number: DKLU1075065

PATIENT
  Age: 41 Year
  Sex: Female

DRUGS (8)
  1. ONFI [Suspect]
     Indication: EPILEPSY
     Dosage: ORAL
     Route: 048
  2. MIRENA [Suspect]
     Indication: CONTRACEPTION
     Dosage: INTRA-UTERINE
     Route: 015
     Dates: start: 20110506
  3. CHLORDIAZEPOXIDE [Suspect]
     Indication: PRODUCT USED FOR UNKNOWN INDICATION
  4. LAMOTRIGINE [Suspect]
     Indication: EPILEPSY
     Dosage: ORAL
     Route: 048
  5. ALTRETINION (ALTRETINOIN) (30 MG) [Suspect]
     Indication: ECZEMA
     Dosage: 30 MG MILLIGRAM(S),1 IN 1 D), ORAL
     Route: 048
     Dates: start: 20110510
  6. TOPAMAX [Suspect]
     Indication: EPILEPSY
     Dosage: ORAL
     Route: 048
  7. TRILEPTAL [Suspect]
     Indication: EPILEPSY
     Dosage: ORAL
     Route: 048
  8. ZOLOFT [Suspect]
     Indication: PRODUCT USED FOR UNKNOWN INDICATION

REACTIONS (5)
  - DIZZINESS [None]
  - HEADACHE [None]
  - EPILEPSY [None]
  - CONDITION AGGRAVATED [None]
  - MULTIPLE INJURIES [None]
